FAERS Safety Report 4709633-6 (Version None)
Quarter: 2005Q3

REPORT INFORMATION
  Report Type: 
  Country: None (occurrence: None)
  Receive Date: 20050707
  Receipt Date: 20050620
  Transmission Date: 20060218
  Serious: Yes (Hospitalization)
  Sender: FDA-Public Use
  Company Number: 2005-01387

PATIENT
  Sex: 0

DRUGS (4)
  1. INTEGRILIN [Suspect]
     Dosage: SEE IMAGE
     Route: 040
  2. COUMADIN [Concomitant]
  3. HEPARIN [Concomitant]
  4. ACETYLSALISILIC ACID [Concomitant]

REACTIONS (1)
  - PERICARDIAL EFFUSION [None]
